FAERS Safety Report 5544911-2 (Version None)
Quarter: 2007Q4

REPORT INFORMATION
  Report Type: 
  Country: None (occurrence: None)
  Receive Date: 20071210
  Receipt Date: 20070111
  Transmission Date: 20080405
  Serious: No
  Sender: FDA-Public Use
  Company Number: US-AMGEN-KDL206741

PATIENT
  Sex: Male

DRUGS (2)
  1. ENBREL [Suspect]
     Indication: PSORIASIS
     Route: 058
     Dates: start: 20040101
  2. ENBREL [Suspect]
     Indication: ARTHRITIS

REACTIONS (3)
  - NASOPHARYNGITIS [None]
  - PSORIASIS [None]
  - VIRAL INFECTION [None]
